FAERS Safety Report 8809343 (Version 1)
Quarter: 2012Q4

REPORT INFORMATION
  Report Type: 
  Country: DE (occurrence: DE)
  Receive Date: 20120926
  Receipt Date: 20120926
  Transmission Date: 20130627
  Serious: Yes (Hospitalization)
  Sender: FDA-Public Use
  Company Number: DE-JNJFOC-20120304265

PATIENT
  Age: 71 Year
  Sex: Female
  Weight: 72 kg

DRUGS (3)
  1. REMINYL [Suspect]
     Indication: DEMENTIA
     Route: 048
     Dates: start: 20120306, end: 20120306
  2. VENLAFAXINE [Concomitant]
     Indication: DEPRESSION
     Route: 048
  3. FOLSAEURE [Concomitant]
     Indication: FOLATE DEFICIENCY
     Route: 048
     Dates: start: 20120205

REACTIONS (2)
  - Tremor [Recovered/Resolved]
  - Hypersensitivity [Recovered/Resolved]
